FAERS Safety Report 4991462-X (Version None)
Quarter: 2006Q2

REPORT INFORMATION
  Report Type: 
  Country: None (occurrence: None)
  Receive Date: 20060501
  Receipt Date: 20060501
  Transmission Date: 20061013
  Serious: Yes (Life-Threatening, Hospitalization)
  Sender: FDA-Public Use
  Company Number: None

PATIENT
  Sex: Female
  Weight: 70.3075 kg

DRUGS (4)
  1. AVASTIN [Suspect]
     Indication: BREAST CANCER METASTATIC
     Dosage: 700 MG  EVERY 2 WEEKS   IV
     Route: 042
     Dates: start: 20051209, end: 20060317
  2. VINORELBINE [Concomitant]
  3. DEXAMETHASONE [Concomitant]
  4. TYLENOL (CAPLET) [Concomitant]

REACTIONS (6)
  - ABDOMINAL PAIN [None]
  - CONSTIPATION [None]
  - DIARRHOEA [None]
  - DYSURIA [None]
  - INTESTINAL PERFORATION [None]
  - PERITONEAL DISORDER [None]
